FAERS Safety Report 6715299-6 (Version None)
Quarter: 2010Q2

REPORT INFORMATION
  Report Type: 
  Country: None (occurrence: None)
  Receive Date: 20100507
  Receipt Date: 20100429
  Transmission Date: 20101027
  Serious: Yes (Other)
  Sender: FDA-Public Use
  Company Number: US-PFIZER INC-2010029086

PATIENT
  Sex: Female
  Weight: 109 kg

DRUGS (8)
  1. LYRICA [Suspect]
     Indication: FIBROMYALGIA
     Dosage: 75 MG, 2X/DAY
     Route: 048
     Dates: start: 20090825, end: 20100201
  2. EFFEXOR [Concomitant]
     Dosage: 150 MG, UNK
  3. TRAZODONE [Concomitant]
     Dosage: 100 MG, UNK
  4. LORATADINE [Concomitant]
     Dosage: 10 MG, UNK
  5. ADVAIR DISKUS 100/50 [Concomitant]
     Dosage: UNK
  6. ALBUTEROL [Concomitant]
     Dosage: UNK
  7. NASONEX [Concomitant]
     Dosage: UNK
  8. TAMOXIFEN [Concomitant]
     Indication: NEOPLASM MALIGNANT
     Dosage: UNK

REACTIONS (3)
  - ALANINE AMINOTRANSFERASE INCREASED [None]
  - ASPARTATE AMINOTRANSFERASE INCREASED [None]
  - RASH [None]
